FAERS Safety Report 25199098 (Version 1)
Quarter: 2025Q2

REPORT INFORMATION
  Report Type: Spontaneous
  Country: SK (occurrence: SK)
  Receive Date: 20250415
  Receipt Date: 20250415
  Transmission Date: 20250716
  Serious: Yes (Other)
  Sender: NOVARTIS
  Company Number: SK-002147023-NVSC2025SK033136

PATIENT
  Sex: Male

DRUGS (2)
  1. PIQRAY [Suspect]
     Active Substance: ALPELISIB
     Indication: Breast cancer
     Dosage: 150 MG, BID
     Route: 048
     Dates: start: 20250210, end: 20250224
  2. PIQRAY [Suspect]
     Active Substance: ALPELISIB
     Dosage: 150 MG, QD
     Route: 048

REACTIONS (3)
  - Hyperglycaemia [Recovering/Resolving]
  - Visual impairment [Recovered/Resolved]
  - Myopia [Unknown]

NARRATIVE: CASE EVENT DATE: 20250224
